FAERS Safety Report 10018311 (Version 1)
Quarter: 2014Q1

REPORT INFORMATION
  Report Type: Spontaneous
  Country: US (occurrence: US)
  Receive Date: 20140318
  Receipt Date: 20140318
  Transmission Date: 20141002
  Serious: Yes (Other)
  Sender: FDA-Public Use
  Company Number: US-BRISTOL-MYERS SQUIBB COMPANY-19958388

PATIENT
  Age: 59 Year
  Sex: Male

DRUGS (4)
  1. ERBITUX [Suspect]
     Dosage: 500 MG WEEKLY?LAST DOSE IN NOV-213
  2. FOLINIC ACID [Suspect]
     Indication: COLORECTAL CANCER METASTATIC
  3. FLUOROURACIL [Suspect]
     Indication: COLORECTAL CANCER METASTATIC
  4. IRINOTECAN [Suspect]
     Indication: COLORECTAL CANCER METASTATIC

REACTIONS (1)
  - Constipation [Unknown]
